FAERS Safety Report 7896146-6 (Version None)
Quarter: 2011Q4

REPORT INFORMATION
  Report Type: 
  Country: None (occurrence: None)
  Receive Date: 20111104
  Receipt Date: 20111104
  Transmission Date: 20120403
  Serious: Yes (Death)
  Sender: FDA-Public Use
  Company Number: None

PATIENT
  Age: 79 Year
  Sex: Male

DRUGS (7)
  1. PRADAXA [Suspect]
  2. ARICEPT [Concomitant]
  3. PLAVIX [Concomitant]
  4. PLAVIX [Suspect]
  5. LASIX [Concomitant]
  6. PRADAXA [Concomitant]
  7. COREG (CARVEDIOLOL) [Concomitant]

REACTIONS (10)
  - SQUAMOUS CELL CARCINOMA OF SKIN [None]
  - POST PROCEDURAL HAEMORRHAGE [None]
  - EPISTAXIS [None]
  - BLOOD CREATININE INCREASED [None]
  - COAGULOPATHY [None]
  - EXSANGUINATION [None]
  - FALL [None]
  - FISTULA [None]
  - HAEMORRHAGE [None]
  - DIALYSIS [None]
